FAERS Safety Report 24279295 (Version 1)
Quarter: 2024Q3

REPORT INFORMATION
  Report Type: Spontaneous
  Country: US (occurrence: US)
  Receive Date: 20240903
  Receipt Date: 20240903
  Transmission Date: 20241017
  Serious: No
  Sender: PFIZER
  Company Number: US-PFIZER INC-202400248265

PATIENT
  Age: 58 Year
  Sex: Male

DRUGS (20)
  1. BRAFTOVI [Suspect]
     Active Substance: ENCORAFENIB
     Dosage: 450 MG, DAILY (6 CAPSULES DAILY)
     Route: 048
     Dates: start: 202403, end: 202408
  2. MEKTOVI [Suspect]
     Active Substance: BINIMETINIB
     Dosage: 45 MG, 2X/DAY
     Route: 048
     Dates: start: 20240105, end: 202408
  3. AMLODIPINE BESYLATE [Concomitant]
     Active Substance: AMLODIPINE BESYLATE
     Dosage: UNK
     Route: 048
  4. ATORVASTATIN CALCIUM [Concomitant]
     Active Substance: ATORVASTATIN CALCIUM
     Dosage: UNK
     Route: 048
  5. CINNAMON [Concomitant]
     Active Substance: CINNAMON
     Dosage: 500 MG
     Route: 048
  6. CVS COENZYME Q 10 [Concomitant]
     Dosage: 50 MG
     Route: 048
  7. COREG [Concomitant]
     Active Substance: CARVEDILOL
     Dosage: 12.5 MG
     Route: 048
  8. DEXAMETHASONE [Concomitant]
     Active Substance: DEXAMETHASONE
     Dosage: UNK
  9. FAMOTIDINE [Concomitant]
     Active Substance: FAMOTIDINE
     Dosage: 40 MG
     Route: 048
  10. FISH OIL [Concomitant]
     Active Substance: FISH OIL
     Dosage: 1200 MG
     Route: 048
  11. GLIPIZIDE [Concomitant]
     Active Substance: GLIPIZIDE
     Dosage: 10 MG
     Route: 048
  12. HYDROCHLOROTHIAZIDE [Concomitant]
     Active Substance: HYDROCHLOROTHIAZIDE
     Dosage: UNK
     Route: 048
  13. JANUVIA [Concomitant]
     Active Substance: SITAGLIPTIN PHOSPHATE
     Dosage: 100 MG
     Route: 048
  14. KEPPRA [Concomitant]
     Active Substance: LEVETIRACETAM
     Dosage: 500 MG
     Route: 048
  15. LEVOTHYROXINE SODIUM [Concomitant]
     Active Substance: LEVOTHYROXINE SODIUM
     Dosage: 15 UNK
     Route: 048
  16. LOSARTAN POTASSIUM [Concomitant]
     Active Substance: LOSARTAN POTASSIUM
     Dosage: 50 MG
     Route: 048
  17. METFORMIN HYDROCHLORIDE [Concomitant]
     Active Substance: METFORMIN HYDROCHLORIDE
     Dosage: 500 MG
     Route: 048
  18. NORCO [Concomitant]
     Active Substance: ACETAMINOPHEN\HYDROCODONE BITARTRATE
     Dosage: UNK
     Route: 048
  19. PIOGLITAZONE [Concomitant]
     Active Substance: PIOGLITAZONE
     Dosage: 30 MG
     Route: 048
  20. TYLENOL EXTRA STRENGTH [Concomitant]
     Active Substance: ACETAMINOPHEN
     Dosage: UNK
     Route: 048

REACTIONS (3)
  - Asthenia [Recovering/Resolving]
  - Fatigue [Recovering/Resolving]
  - Heart rate increased [Unknown]
